FAERS Safety Report 7444494-6 (Version None)
Quarter: 2011Q2

REPORT INFORMATION
  Report Type: 
  Country: None (occurrence: None)
  Receive Date: 20110429
  Receipt Date: 20110425
  Transmission Date: 20111010
  Serious: Yes (Other)
  Sender: FDA-Public Use
  Company Number: JP-ASTELLAS-2011JP002844

PATIENT
  Age: 56 Year
  Sex: Female

DRUGS (4)
  1. FLUDARABINE PHOSPHATE [Concomitant]
     Dosage: 30 MG/M2, UNKNOWN/D
     Route: 065
  2. CYCLOPHOSPHAMIDE [Concomitant]
     Dosage: 60 MG/KG, UNKNOWN/D
     Route: 065
  3. FLUDARABINE PHOSPHATE [Concomitant]
     Dosage: 30 MG/M2, UNKNOWN/D
     Route: 065
  4. PROGRAF [Suspect]
     Indication: PROPHYLAXIS AGAINST GRAFT VERSUS HOST DISEASE
     Route: 065

REACTIONS (3)
  - CHRONIC GRAFT VERSUS HOST DISEASE [None]
  - CYTOMEGALOVIRUS VIRAEMIA [None]
  - DRUG INEFFECTIVE [None]
